FAERS Safety Report 8068450-2 (Version None)
Quarter: 2012Q1

REPORT INFORMATION
  Report Type: 
  Country: None (occurrence: None)
  Receive Date: 20120124
  Receipt Date: 20111026
  Transmission Date: 20120608
  Serious: No
  Sender: FDA-Public Use
  Company Number: US-AMGEN-USASP2011055847

PATIENT
  Age: 85 Year
  Sex: Female

DRUGS (11)
  1. ZOCOR [Concomitant]
  2. PROLIA [Suspect]
     Indication: OSTEOPOROSIS POSTMENOPAUSAL
     Dosage: 60 MG, Q6MO
     Dates: start: 20110502
  3. PRILOSEC [Concomitant]
     Dosage: 1 MG, UNK
  4. CITRACAL                           /00751520/ [Concomitant]
     Dosage: 1 UNK, UNK
  5. VITAMIN C                          /00008001/ [Concomitant]
     Dosage: 1 MG, UNK
  6. CLONIDINE [Concomitant]
     Dosage: UNK
  7. LANTUS [Concomitant]
     Dosage: 1 IU, UNK
  8. PROCARDIN                          /00002701/ [Concomitant]
     Dosage: 1 MG, UNK
  9. FUROSEMIDE [Concomitant]
  10. METOPROLOL TARTRATE [Concomitant]
  11. VICODIN [Concomitant]

REACTIONS (1)
  - BACK PAIN [None]
